FAERS Safety Report 15149411 (Version 1)
Quarter: 2018Q3

REPORT INFORMATION
  Report Type: Spontaneous
  Country: US (occurrence: US)
  Receive Date: 20180619
  Receipt Date: 20180619
  Transmission Date: 20181010
  Serious: Yes (Death)
  Sender: FDA-Public Use
  Company Number: None

PATIENT
  Age: 61 Year
  Sex: Male

DRUGS (5)
  1. GLATOPA [Suspect]
     Active Substance: GLATIRAMER ACETATE
     Indication: MULTIPLE SCLEROSIS
     Route: 058
     Dates: start: 20170817, end: 20180510
  2. FLUTICASONE. [Concomitant]
     Active Substance: FLUTICASONE
  3. COPAXONE [Concomitant]
     Active Substance: GLATIRAMER ACETATE
  4. IBANDRONATE [Concomitant]
     Active Substance: IBANDRONATE SODIUM
  5. TIZANIDINE. [Concomitant]
     Active Substance: TIZANIDINE

REACTIONS (1)
  - Death [None]

NARRATIVE: CASE EVENT DATE: 20180608
